FAERS Safety Report 8589277-9 (Version None)
Quarter: 2012Q3

REPORT INFORMATION
  Report Type: 
  Country: None (occurrence: None)
  Receive Date: 20120813
  Receipt Date: 20120802
  Transmission Date: 20120928
  Serious: Yes (Other)
  Sender: FDA-Public Use
  Company Number: US-BAYER-2012-044794

PATIENT
  Age: 32 Year
  Sex: Female

DRUGS (1)
  1. MIRENA [Suspect]
     Indication: CONTRACEPTION
     Dosage: 20 MCG/24HR, CONT
     Route: 015
     Dates: start: 20110929, end: 20120607

REACTIONS (7)
  - INTRA-UTERINE CONTRACEPTIVE DEVICE REMOVAL [None]
  - DEPRESSION [None]
  - NERVOUSNESS [None]
  - DEVICE DISLOCATION [None]
  - HEADACHE [None]
  - NAUSEA [None]
  - DEVICE INTOLERANCE [None]
